FAERS Safety Report 8614886-8 (Version None)
Quarter: 2012Q3

REPORT INFORMATION
  Report Type: 
  Country: None (occurrence: None)
  Receive Date: 20120823
  Receipt Date: 20120709
  Transmission Date: 20120928
  Serious: No
  Sender: FDA-Public Use
  Company Number: US-BRISTOL-MYERS SQUIBB COMPANY-16756157

PATIENT
  Age: 5 Decade
  Sex: Female

DRUGS (1)
  1. KOMBIGLYZE XR [Suspect]
     Indication: DIABETES MELLITUS
     Dates: start: 20120101

REACTIONS (1)
  - HYPOGLYCAEMIA [None]
